FAERS Safety Report 8248329 (Version 3)
Quarter: 2014Q1

REPORT INFORMATION
  Report Type: Report from Study
  Country: FR (occurrence: FR)
  Receive Date: 20111117
  Receipt Date: 20140207
  Transmission Date: 20141002
  Serious: Yes (Other)
  Sender: FDA-Public Use
  Company Number: FR-ASTELLAS-2011US007591

PATIENT
  Age: 64 Year
  Sex: Female

DRUGS (5)
  1. ERLOTINIB TABLET [Suspect]
     Indication: MALIGNANT NEOPLASM OF PLEURA
     Dosage: 150 MG, UID/QD
     Route: 048
     Dates: start: 20091015
  2. ERLOTINIB TABLET [Suspect]
     Dosage: 125 MG, UID/QD
     Route: 048
     Dates: end: 20120831
  3. PREVISCAN                          /00789001/ [Concomitant]
     Indication: MYOCARDIAL ISCHAEMIA
     Dosage: UNK
     Route: 048
     Dates: start: 20070507, end: 20091117
  4. KARDEGIC [Concomitant]
     Indication: MYOCARDIAL ISCHAEMIA
     Dosage: UNK
     Route: 048
     Dates: start: 20070507, end: 20091117
  5. PLAVIX [Concomitant]
     Indication: MYOCARDIAL ISCHAEMIA
     Dosage: UNK
     Route: 048
     Dates: start: 20130507

REACTIONS (2)
  - Vascular fragility [Recovered/Resolved]
  - Epistaxis [Recovered/Resolved]
